FAERS Safety Report 9617447 (Version 1)
Quarter: 2013Q4

REPORT INFORMATION
  Report Type: Spontaneous
  Country: US (occurrence: US)
  Receive Date: 20131011
  Receipt Date: 20131011
  Transmission Date: 20140711
  Serious: Yes (Death, Other)
  Sender: FDA-Public Use
  Company Number: US-CELGENEUS-163-21880-13101606

PATIENT
  Sex: Male

DRUGS (3)
  1. REVLIMID [Suspect]
     Indication: MYELODYSPLASTIC SYNDROME
     Dosage: 10 MILLIGRAM
     Route: 048
     Dates: start: 20121112
  2. REVLIMID [Suspect]
     Dosage: 5 MILLIGRAM
     Route: 048
     Dates: start: 201302, end: 20130612
  3. TABLOID [Concomitant]
     Indication: LYMPHADENITIS
     Dosage: 5 TABLET
     Route: 048
     Dates: start: 20130801

REACTIONS (2)
  - Death [Fatal]
  - Acute myeloid leukaemia [Unknown]
